FAERS Safety Report 8828316 (Version 1)
Quarter: 2012Q4

REPORT INFORMATION
  Report Type: 
  Country: FR (occurrence: FR)
  Receive Date: 20121005
  Receipt Date: 20121005
  Transmission Date: 20130627
  Serious: Yes (Other)
  Sender: FDA-Public Use
  Company Number: FR-BIOGENIDEC-2012BI041466

PATIENT
  Age: 47 Year
  Sex: Male

DRUGS (8)
  1. TYSABRI [Suspect]
     Indication: MULTIPLE SCLEROSIS
     Route: 042
     Dates: start: 200711, end: 200801
  2. TYSABRI [Suspect]
     Indication: MULTIPLE SCLEROSIS
     Route: 042
     Dates: start: 200804, end: 20120613
  3. TYSABRI [Suspect]
     Indication: MULTIPLE SCLEROSIS
     Route: 042
     Dates: start: 20120824, end: 20120824
  4. LAROXYL [Concomitant]
     Dates: start: 200901
  5. IMOVANE [Concomitant]
     Route: 048
     Dates: start: 200904
  6. NEURONTIN [Concomitant]
     Route: 048
     Dates: start: 201101, end: 201109
  7. NEURONTIN [Concomitant]
     Route: 048
     Dates: start: 201109
  8. LYRICA [Concomitant]
     Route: 048
     Dates: start: 200804, end: 201101

REACTIONS (1)
  - Purpura [Recovered/Resolved]
